FAERS Safety Report 19168752 (Version 1)
Quarter: 2021Q2

REPORT INFORMATION
  Report Type: Report from Study
  Country: PH (occurrence: PH)
  Receive Date: 20210422
  Receipt Date: 20210422
  Transmission Date: 20210717
  Serious: Yes (Death, Hospitalization)
  Sender: FDA-Public Use
  Company Number: PH-EISAI MEDICAL RESEARCH-EC-2021-091436

PATIENT
  Age: 63 Year
  Sex: Male

DRUGS (1)
  1. LENVIMA [Suspect]
     Active Substance: LENVATINIB
     Indication: HEPATOCELLULAR CARCINOMA
     Route: 048
     Dates: start: 202104, end: 202104

REACTIONS (2)
  - Hepatitis A [Recovering/Resolving]
  - Acute myocardial infarction [Fatal]

NARRATIVE: CASE EVENT DATE: 202104
